FAERS Safety Report 9008939 (Version 2)
Quarter: 2013Q1

REPORT INFORMATION
  Report Type: Spontaneous
  Country: IL (occurrence: IL)
  Receive Date: 20130111
  Receipt Date: 20130115
  Transmission Date: 20140127
  Serious: Yes (Other)
  Sender: FDA-Public Use
  Company Number: IL-SANOFI-AVENTIS-2013SA002351

PATIENT
  Age: 76 Year
  Sex: Female

DRUGS (8)
  1. LANTUS [Suspect]
     Indication: PRODUCT USED FOR UNKNOWN INDICATION
     Dosage: DOSE: 38 UNITS NOT SPECIFIED?FREQUENCY: IN EVENING
     Route: 065
  2. APIDRA [Concomitant]
  3. HUMALOG [Concomitant]
  4. JANUVIA [Concomitant]
  5. INSULIN [Concomitant]
  6. GLUCOPHAGE [Concomitant]
  7. SIMVASTATIN [Concomitant]
  8. PLAVIX [Concomitant]

REACTIONS (4)
  - Transient ischaemic attack [Recovered/Resolved]
  - Paraesthesia [Recovered/Resolved]
  - Grip strength decreased [Recovered/Resolved]
  - Hypoglycaemia [Unknown]
